FAERS Safety Report 7366679-X (Version None)
Quarter: 2011Q1

REPORT INFORMATION
  Report Type: 
  Country: None (occurrence: None)
  Receive Date: 20110310
  Receipt Date: 20110228
  Transmission Date: 20110831
  Serious: Yes (Hospitalization)
  Sender: FDA-Public Use
  Company Number: 2011MA001972

PATIENT
  Age: 84 Year
  Sex: Female

DRUGS (6)
  1. MIRTAZAPINE [Suspect]
     Indication: PRODUCT USED FOR UNKNOWN INDICATION
     Dosage: ; PO
     Route: 048
     Dates: start: 20100923, end: 20100923
  2. KCL TAB [Suspect]
     Indication: PRODUCT USED FOR UNKNOWN INDICATION
     Dosage: 600 MG;
  3. MIRTAZAPINE [Suspect]
     Indication: PRODUCT USED FOR UNKNOWN INDICATION
     Dosage: ; PO
     Route: 048
     Dates: start: 20100923, end: 20100923
  4. ZOLPIDEM [Suspect]
     Indication: PRODUCT USED FOR UNKNOWN INDICATION
     Dosage: ; PO
     Route: 048
     Dates: start: 20100923, end: 20100923
  5. MICARDIS [Suspect]
     Indication: PRODUCT USED FOR UNKNOWN INDICATION
     Dosage: ; PO
     Route: 048
     Dates: start: 20100923, end: 20100923
  6. POTASSIUM CHLORIDE [Concomitant]

REACTIONS (2)
  - COMA [None]
  - DRUG ABUSE [None]
